FAERS Safety Report 20595058 (Version 1)
Quarter: 2022Q1

REPORT INFORMATION
  Report Type: Spontaneous
  Country: US (occurrence: None)
  Receive Date: 20220314
  Receipt Date: 20220314
  Transmission Date: 20220424
  Serious: Yes (Hospitalization)
  Sender: FDA-Public Use
  Company Number: None

PATIENT
  Sex: Female

DRUGS (2)
  1. CUVITRU [Suspect]
     Active Substance: HUMAN IMMUNOGLOBULIN G
     Indication: Immunodeficiency common variable
     Dosage: OTHER STRENGTH : 8/40 GM/ML ;?FREQUENCY : EVERY OTHER WEEK;?
     Route: 058
     Dates: start: 20210924
  2. CUVITRU [Suspect]
     Active Substance: HUMAN IMMUNOGLOBULIN G
     Indication: Immunodeficiency common variable
     Dosage: OTHER STRENGTH : 10/50 GM/ML;?FREQUENCY : EVERY OTHER WEEK;?
     Route: 058
     Dates: start: 20210924

REACTIONS (1)
  - Hospitalisation [None]
